FAERS Safety Report 7759689-1 (Version None)
Quarter: 2011Q3

REPORT INFORMATION
  Report Type: 
  Country: None (occurrence: None)
  Receive Date: 20110919
  Receipt Date: 20110916
  Transmission Date: 20111222
  Serious: Yes (Death, Hospitalization)
  Sender: FDA-Public Use
  Company Number: CN-MPIJNJ-2011-03928

PATIENT

DRUGS (1)
  1. VELCADE [Suspect]
     Indication: LEUKAEMIA PLASMACYTIC
     Dosage: 2.2 MG, UNK
     Route: 042
     Dates: start: 20110707, end: 20110818

REACTIONS (3)
  - DIARRHOEA [None]
  - DEATH [None]
  - HYPERPYREXIA [None]
